FAERS Safety Report 5358657-7 (Version None)
Quarter: 2007Q2

REPORT INFORMATION
  Report Type: 
  Country: None (occurrence: None)
  Receive Date: 20070615
  Receipt Date: 20070611
  Transmission Date: 20071010
  Serious: Yes (Disabling, Other)
  Sender: FDA-Public Use
  Company Number: FR-JNJFOC-20070505538

PATIENT
  Age: 52 Year
  Sex: Male
  Weight: 97 kg

DRUGS (14)
  1. REMICADE [Suspect]
     Route: 042
  2. REMICADE [Suspect]
     Route: 042
  3. REMICADE [Suspect]
     Route: 042
  4. REMICADE [Suspect]
     Indication: ANKYLOSING SPONDYLITIS
     Route: 042
  5. METHOTREXATE [Suspect]
     Indication: ANKYLOSING SPONDYLITIS
  6. MOBIC [Concomitant]
     Indication: ANKYLOSING SPONDYLITIS
  7. SEROPRAM [Concomitant]
     Indication: DEPRESSION
  8. BUSPAR [Concomitant]
     Indication: DEPRESSION
     Dosage: 1/2 TAB THREE TIMES A DAY
  9. EUPANTHOL [Concomitant]
     Indication: GASTROINTESTINAL DISORDER THERAPY
  10. CELECTOL [Concomitant]
     Indication: HYPERTENSION
     Dosage: 1 TABLET DAILY
  11. HYPERIUM [Concomitant]
     Indication: HYPERTENSION
     Dosage: 1 TABLET DAILY
  12. TAKADOL [Concomitant]
  13. DOLIPRANE [Concomitant]
     Indication: ANALGESIC EFFECT
  14. PRIOR 80 [Concomitant]
     Indication: HYPERTENSION
     Dosage: 2 TABLETS DAILY

REACTIONS (2)
  - GAIT DISTURBANCE [None]
  - PERIPHERAL SENSORY NEUROPATHY [None]
